FAERS Safety Report 10534077 (Version 6)
Quarter: 2015Q1

REPORT INFORMATION
  Report Type: Report from Study
  Country: US (occurrence: US)
  Receive Date: 20141022
  Receipt Date: 20150119
  Transmission Date: 20150720
  Serious: Yes (Hospitalization)
  Sender: FDA-Public Use
  Company Number: US-ACTELION-A-NJ2014-105939

PATIENT
  Age: 47 Year
  Sex: Female

DRUGS (3)
  1. REMODULIN [Suspect]
     Active Substance: TREPROSTINIL
     Indication: PRODUCT USED FOR UNKNOWN INDICATION
     Dosage: 18 NG/KG, PER MIN
     Route: 042
     Dates: start: 20140718
  2. WARFARIN [Concomitant]
     Active Substance: WARFARIN
  3. MACITENTAN [Suspect]
     Active Substance: MACITENTAN
     Indication: PULMONARY ARTERIAL HYPERTENSION
     Dosage: 10 MG, UNK
     Route: 048
     Dates: start: 20140619, end: 20141101

REACTIONS (12)
  - Adrenocortical insufficiency acute [Unknown]
  - Contusion [Unknown]
  - Hepatic failure [Not Recovered/Not Resolved]
  - Clostridium difficile infection [Not Recovered/Not Resolved]
  - Fall [Unknown]
  - Haemorrhoidal haemorrhage [Unknown]
  - Device related sepsis [Recovering/Resolving]
  - Septic shock [Unknown]
  - Hypotension [Not Recovered/Not Resolved]
  - Acute kidney injury [Unknown]
  - Diarrhoea [Not Recovered/Not Resolved]
  - Pulmonary arterial hypertension [Unknown]

NARRATIVE: CASE EVENT DATE: 20141029
